FAERS Safety Report 4844359-X (Version None)
Quarter: 2005Q4

REPORT INFORMATION
  Report Type: 
  Country: None (occurrence: None)
  Receive Date: 20051202
  Receipt Date: 20051123
  Transmission Date: 20060501
  Serious: Yes (Hospitalization)
  Sender: FDA-Public Use
  Company Number: US-MERCK-0511USA04168

PATIENT
  Sex: Female
  Weight: 134 kg

DRUGS (12)
  1. VIOXX [Suspect]
     Indication: GOUT
     Route: 048
     Dates: end: 20030101
  2. VIOXX [Suspect]
     Indication: ARTHRITIS
     Route: 048
     Dates: end: 20030101
  3. LASIX [Suspect]
     Route: 065
  4. COUMADIN [Concomitant]
     Route: 065
  5. THEO-DUR [Concomitant]
     Route: 065
  6. ZAROXOLYN [Concomitant]
     Route: 065
  7. BEXTRA [Concomitant]
     Route: 065
  8. FLONASE [Concomitant]
     Route: 065
  9. CARDIZEM [Concomitant]
     Route: 065
  10. ALLOPURINOL [Concomitant]
     Route: 065
  11. SINGULAIR [Concomitant]
     Route: 065
  12. LASIX [Concomitant]
     Route: 065

REACTIONS (9)
  - ACUTE CORONARY SYNDROME [None]
  - BALANCE DISORDER [None]
  - BLINDNESS [None]
  - HAEMORRHAGE [None]
  - HEART RATE IRREGULAR [None]
  - HYPOKINESIA [None]
  - IMMOBILE [None]
  - PAIN [None]
  - THROMBOSIS [None]
